FAERS Safety Report 8056544-7 (Version None)
Quarter: 2012Q1

REPORT INFORMATION
  Report Type: 
  Country: None (occurrence: None)
  Receive Date: 20120119
  Receipt Date: 20120105
  Transmission Date: 20120608
  Serious: Yes (Hospitalization, Other)
  Sender: FDA-Public Use
  Company Number: GB-BAUSCH-2012BL000177

PATIENT
  Age: 59 Year
  Sex: Female
  Weight: 104 kg

DRUGS (23)
  1. OMEPRAZOLE [Concomitant]
     Dates: start: 20110705
  2. ACETAMINOPHEN AND CODEINE PHOSPHATE [Concomitant]
     Dates: start: 20110705
  3. EPIPEN /AUS/ [Concomitant]
     Dates: start: 20111011, end: 20111012
  4. FLUTICASONE PROPIONATE [Concomitant]
     Dates: start: 20110705
  5. AMOXICILLIN [Suspect]
     Indication: PRODUCT USED FOR UNKNOWN INDICATION
     Route: 065
     Dates: start: 20110816, end: 20110821
  6. FUCIDIN /SCH/ [Concomitant]
     Dates: start: 20111014
  7. TIOPRONIN [Concomitant]
     Dates: start: 20110705
  8. LISINOPRIL [Suspect]
     Indication: PRODUCT USED FOR UNKNOWN INDICATION
     Route: 065
     Dates: start: 20101101
  9. AMLODIPINE [Concomitant]
     Dates: start: 20111012
  10. EPIPEN /AUS/ [Concomitant]
     Dates: start: 20110927, end: 20110928
  11. ESTRADIOL VALERATE [Concomitant]
     Dates: start: 20111011
  12. FLUOXETINE ^ALTER^ [Concomitant]
     Dates: start: 20110705
  13. ERYTHROMYCIN [Concomitant]
     Dates: start: 20111014
  14. FLUCONAZOLE [Concomitant]
     Dates: start: 20110816
  15. UNIPHYLLIN ^NAPP^ [Concomitant]
     Dates: start: 20111011
  16. CETIRIZINE [Concomitant]
     Dates: start: 20110705
  17. NICOTINE [Concomitant]
     Dates: start: 20110928, end: 20111012
  18. PREDNISOLONE [Suspect]
     Indication: PRODUCT USED FOR UNKNOWN INDICATION
     Route: 065
     Dates: start: 20110816, end: 20110826
  19. BENDROFLUMETHIAZIDE [Concomitant]
     Dates: start: 20110705, end: 20110823
  20. ESTRADIOL VALERATE [Concomitant]
     Dates: start: 20110706, end: 20110928
  21. FUROSEMIDE [Concomitant]
     Dates: start: 20110705
  22. NICOTINE [Concomitant]
     Dates: start: 20110927, end: 20111004
  23. VENTOLIN [Concomitant]
     Dates: start: 20111011

REACTIONS (2)
  - ANAPHYLACTIC SHOCK [None]
  - DRUG INTERACTION [None]
